FAERS Safety Report 13402207 (Version 1)
Quarter: 2017Q2

REPORT INFORMATION
  Report Type: Spontaneous
  Country: JP (occurrence: JP)
  Receive Date: 20170404
  Receipt Date: 20170404
  Transmission Date: 20170830
  Serious: Yes (Death, Hospitalization, Other)
  Sender: FDA-Public Use
  Company Number: JP-JNJFOC-20170400377

PATIENT
  Age: 91 Year
  Sex: Female

DRUGS (11)
  1. IGURATIMOD [Suspect]
     Active Substance: IGURATIMOD
     Indication: RHEUMATOID ARTHRITIS
     Route: 048
     Dates: start: 20160412, end: 20161011
  2. OFLOXACIN. [Concomitant]
     Active Substance: OFLOXACIN
     Indication: DRY EYE
     Route: 047
     Dates: start: 20130116, end: 20161011
  3. HYALURONATE NA [Concomitant]
     Active Substance: HYALURONATE SODIUM
     Indication: DRY EYE
     Route: 047
     Dates: start: 20130116, end: 20161011
  4. FELBINAC ETHYL [Concomitant]
     Route: 062
     Dates: start: 20090204, end: 20161012
  5. KETOPROFEN. [Concomitant]
     Active Substance: KETOPROFEN
     Route: 062
     Dates: start: 20131225, end: 20161012
  6. TRAMCET [Suspect]
     Active Substance: ACETAMINOPHEN\TRAMADOL
     Indication: PAIN
     Route: 048
     Dates: start: 20150708, end: 20161011
  7. PREDNISOLONE. [Suspect]
     Active Substance: PREDNISOLONE
     Indication: RHEUMATOID ARTHRITIS
     Route: 048
     Dates: start: 20140610, end: 20161011
  8. ALLOPURINOL. [Suspect]
     Active Substance: ALLOPURINOL
     Indication: HYPERURICAEMIA
     Route: 048
     Dates: start: 20130904, end: 20160830
  9. LAFUTIDINE [Suspect]
     Active Substance: LAFUTIDINE
     Indication: GASTRITIS
     Route: 048
     Dates: start: 20121212, end: 20161011
  10. ETANERCEPT [Suspect]
     Active Substance: ETANERCEPT
     Indication: RHEUMATOID ARTHRITIS
     Route: 058
     Dates: start: 20121024, end: 20140610
  11. ETANERCEPT [Suspect]
     Active Substance: ETANERCEPT
     Indication: RHEUMATOID ARTHRITIS
     Route: 058
     Dates: start: 20140610, end: 20161011

REACTIONS (9)
  - White blood cell count increased [Unknown]
  - Weight decreased [Unknown]
  - Azotaemia [Fatal]
  - Condition aggravated [Fatal]
  - Loss of personal independence in daily activities [Unknown]
  - Renal failure [Fatal]
  - Respiratory distress [Unknown]
  - Hypophagia [Unknown]
  - Muscular weakness [Unknown]

NARRATIVE: CASE EVENT DATE: 2016
